FAERS Safety Report 11544556 (Version 2)
Quarter: 2015Q4

REPORT INFORMATION
  Report Type: Report from Study
  Country: AR (occurrence: AR)
  Receive Date: 20150924
  Receipt Date: 20151012
  Transmission Date: 20160304
  Serious: Yes (Other)
  Sender: FDA-Public Use
  Company Number: PHHY2015AR113401

PATIENT
  Sex: Female

DRUGS (1)
  1. RASILEZ [Suspect]
     Active Substance: ALISKIREN
     Indication: HYPERTENSION
     Dosage: 0.5 DF, BID (HALF IN THE MORNING AND HALF IN THE AFTERNOON)
     Route: 065

REACTIONS (3)
  - Wrong technique in product usage process [Unknown]
  - Arterial occlusive disease [Recovered/Resolved]
  - Diabetes mellitus [Recovered/Resolved]
